FAERS Safety Report 10044992 (Version 2)
Quarter: 2014Q2

REPORT INFORMATION
  Report Type: Report from Study
  Country: US (occurrence: US)
  Receive Date: 20140328
  Receipt Date: 20140414
  Transmission Date: 20141212
  Serious: Yes (Other)
  Sender: FDA-Public Use
  Company Number: US-ABBVIE-14P-163-1214988-00

PATIENT
  Age: 34 Year
  Sex: Female
  Weight: 77.63 kg

DRUGS (6)
  1. HUMIRA [Suspect]
     Indication: ANKYLOSING SPONDYLITIS
     Dates: start: 201401
  2. WELLBUTRIN [Concomitant]
     Indication: ANXIETY
  3. WELLBUTRIN [Concomitant]
     Indication: DEPRESSION
  4. MELOXICAM [Concomitant]
     Indication: ANKYLOSING SPONDYLITIS
  5. CYMBALTA [Concomitant]
     Indication: ANXIETY
  6. CYMBALTA [Concomitant]
     Indication: DEPRESSION

REACTIONS (2)
  - Pain in extremity [Recovered/Resolved]
  - Foot deformity [Recovered/Resolved]
